FAERS Safety Report 21982158 (Version 1)
Quarter: 2023Q1

REPORT INFORMATION
  Report Type: Spontaneous
  Country: CN (occurrence: CN)
  Receive Date: 20230213
  Receipt Date: 20230213
  Transmission Date: 20230417
  Serious: Yes (Hospitalization, Other)
  Sender: FDA-Public Use
  Company Number: CN-SUN PHARMACEUTICAL INDUSTRIES LTD-2023R1-377301

PATIENT
  Age: 48 Year
  Sex: Male

DRUGS (3)
  1. CARBOPLATIN [Suspect]
     Active Substance: CARBOPLATIN
     Indication: Chemotherapy
     Dosage: 130 MILLIGRAM,  JULY 17, AUGUST 8, AND AUGUST 30, 2020.
     Route: 065
  2. CARBOPLATIN [Suspect]
     Active Substance: CARBOPLATIN
     Dosage: 450 MILLIGRAM, SEPTEMBER 30, OCTOBER 26, AND NOVEMBER 16, 2020
     Route: 065
  3. PACLITAXEL [Suspect]
     Active Substance: PACLITAXEL
     Indication: Chemotherapy
     Dosage: 400 MILLIGRAM
     Route: 065

REACTIONS (1)
  - Radiation pneumonitis [Recovering/Resolving]
